FAERS Safety Report 12669399 (Version 1)
Quarter: 2016Q3

REPORT INFORMATION
  Report Type: Spontaneous
  Country: DE (occurrence: DE)
  Receive Date: 20160819
  Receipt Date: 20160819
  Transmission Date: 20161109
  Serious: Yes (Life-Threatening, Hospitalization, Other)
  Sender: FDA-Public Use
  Company Number: DE-NOVOPROD-505966

PATIENT
  Age: 77 Year
  Sex: Male

DRUGS (2)
  1. NOVOSEVEN [Suspect]
     Active Substance: COAGULATION FACTOR VIIA RECOMBINANT HUMAN
     Indication: ACQUIRED HAEMOPHILIA
     Dosage: 90 ?G/KG
     Route: 065
  2. PREDNISOLONE. [Concomitant]
     Active Substance: PREDNISOLONE
     Dosage: 100 MG, QD
     Route: 048

REACTIONS (4)
  - Thrombosis [Recovered/Resolved]
  - Haematuria [Recovered/Resolved]
  - Renal colic [Recovered/Resolved]
  - Drug ineffective [Unknown]
